FAERS Safety Report 24625879 (Version 1)
Quarter: 2024Q4

REPORT INFORMATION
  Report Type: Spontaneous
  Country: CN (occurrence: CN)
  Receive Date: 20241115
  Receipt Date: 20241115
  Transmission Date: 20250115
  Serious: Yes (Hospitalization, Other)
  Sender: PURDUE
  Company Number: CN-NAPPMUNDI-GBR-2024-0121228

PATIENT
  Age: 84 Year
  Sex: Male
  Weight: 52 kg

DRUGS (2)
  1. OXYCODONE HYDROCHLORIDE [Suspect]
     Active Substance: OXYCODONE HYDROCHLORIDE
     Indication: Analgesic therapy
     Dosage: 20 MILLIGRAM, Q12H
     Route: 048
     Dates: start: 20241028, end: 20241028
  2. OXYCODONE HYDROCHLORIDE [Suspect]
     Active Substance: OXYCODONE HYDROCHLORIDE
     Dosage: 40 MILLIGRAM, BID
     Route: 048
     Dates: start: 20241029, end: 20241031

REACTIONS (5)
  - Confusional state [Recovering/Resolving]
  - Miosis [Recovering/Resolving]
  - Restlessness [Recovering/Resolving]
  - Unresponsive to stimuli [Recovering/Resolving]
  - Agitation [Recovering/Resolving]

NARRATIVE: CASE EVENT DATE: 20241031
